FAERS Safety Report 17565761 (Version 1)
Quarter: 2020Q1

REPORT INFORMATION
  Report Type: Spontaneous
  Country: US (occurrence: US)
  Receive Date: 20200228
  Receipt Date: 20200228
  Transmission Date: 20200409
  Serious: Yes (Hospitalization)
  Sender: FDA-Public Use
  Company Number: None

PATIENT
  Age: 43 Year
  Sex: Female

DRUGS (15)
  1. BENLYSTA [Suspect]
     Active Substance: BELIMUMAB
     Indication: PERICARDITIS
     Dosage: ?          OTHER DOSE:1 PEN;?
     Route: 058
     Dates: start: 20190703
  2. MIOXIFLOXACIN [Concomitant]
  3. ALPRAZOLAM. [Concomitant]
     Active Substance: ALPRAZOLAM
  4. CEPHALEXIN. [Concomitant]
     Active Substance: CEPHALEXIN
  5. COLCHICINE. [Concomitant]
     Active Substance: COLCHICINE
  6. HYDROCO/APAP [Concomitant]
     Active Substance: ACETAMINOPHEN\HYDROCODONE
  7. VIRTUSSIN AC [Concomitant]
     Active Substance: CODEINE PHOSPHATE\GUAIFENESIN
  8. AMOXICILLIN. [Concomitant]
     Active Substance: AMOXICILLIN
  9. BENLYSTA [Suspect]
     Active Substance: BELIMUMAB
     Indication: SYSTEMIC LUPUS ERYTHEMATOSUS
     Dosage: ?          OTHER DOSE:1 PEN;?
     Route: 058
     Dates: start: 20190703
  10. ESCITALOPRAM [Concomitant]
     Active Substance: ESCITALOPRAM OXALATE
  11. HYDROXYCHLOR [Concomitant]
     Active Substance: HYDROXYCHLOROQUINE
  12. LEVOFLOXACIN. [Concomitant]
     Active Substance: LEVOFLOXACIN
  13. OMEPRAZOLE. [Concomitant]
     Active Substance: OMEPRAZOLE
  14. PREDNISONE. [Concomitant]
     Active Substance: PREDNISONE
  15. TIZANIDINE. [Concomitant]
     Active Substance: TIZANIDINE

REACTIONS (2)
  - Pneumonia [None]
  - Therapy cessation [None]

NARRATIVE: CASE EVENT DATE: 202002
